FAERS Safety Report 7050245-X (Version None)
Quarter: 2010Q4

REPORT INFORMATION
  Report Type: 
  Country: None (occurrence: None)
  Receive Date: 20101018
  Receipt Date: 20101009
  Transmission Date: 20110411
  Serious: Yes (Death, Hospitalization)
  Sender: FDA-Public Use
  Company Number: US-BAYER-201018340BCC

PATIENT
  Age: 78 Year
  Sex: Female
  Weight: 91 kg

DRUGS (1)
  1. ALEVE (CAPLET) [Suspect]
     Indication: PAIN
     Dosage: UNIT DOSE: 220 MG
     Route: 048
     Dates: start: 20100509

REACTIONS (7)
  - CEREBROVASCULAR ARTERIOVENOUS MALFORMATION [None]
  - COMA [None]
  - HAEMORRHAGIC STROKE [None]
  - HUNGER [None]
  - MALAISE [None]
  - UNRESPONSIVE TO STIMULI [None]
  - VOMITING [None]
